FAERS Safety Report 5827117-9 (Version None)
Quarter: 2008Q3

REPORT INFORMATION
  Report Type: 
  Country: None (occurrence: None)
  Receive Date: 20080729
  Receipt Date: 20080729
  Transmission Date: 20090109
  Serious: Yes (Hospitalization)
  Sender: FDA-Public Use
  Company Number: None

PATIENT
  Sex: Female
  Weight: 65 kg

DRUGS (6)
  1. CARBOPLATIN [Suspect]
     Dosage: 636 MG
     Dates: end: 20080707
  2. TAXOL [Suspect]
     Dosage: 294 MG
     Dates: end: 20080707
  3. AMBIEN [Concomitant]
  4. COMPAZINE [Concomitant]
  5. HYDROCODONE BITARTRATE [Concomitant]
  6. LORAZEPAM [Concomitant]

REACTIONS (4)
  - DIARRHOEA [None]
  - GASTRITIS [None]
  - NEUTROPENIA [None]
  - PLATELET COUNT DECREASED [None]
